FAERS Safety Report 4564684-X (Version None)
Quarter: 2005Q1

REPORT INFORMATION
  Report Type: 
  Country: None (occurrence: None)
  Receive Date: 20050126
  Receipt Date: 20041228
  Transmission Date: 20050727
  Serious: Yes (Life-Threatening, Hospitalization)
  Sender: FDA-Public Use
  Company Number: JP_041205471

PATIENT
  Age: 69 Year
  Sex: Male
  Weight: 76 kg

DRUGS (4)
  1. ONCOVIN [Suspect]
     Indication: MALIGNANT MELANOMA
     Dosage: 1 MG OTHER
     Dates: start: 20041208, end: 20041208
  2. FERON (INTERFERON BETA) [Concomitant]
  3. DACARBAZINE [Concomitant]
  4. KYTRIL [Concomitant]

REACTIONS (2)
  - ACUTE MYOCARDIAL INFARCTION [None]
  - CORONARY ARTERY OCCLUSION [None]
